FAERS Safety Report 24617209 (Version 1)
Quarter: 2024Q4

REPORT INFORMATION
  Report Type: Spontaneous
  Country: US (occurrence: US)
  Receive Date: 20241114
  Receipt Date: 20241114
  Transmission Date: 20250114
  Serious: No
  Sender: BIOGEN
  Company Number: US-BIOGEN-2024BI01290218

PATIENT
  Sex: Female

DRUGS (1)
  1. TECFIDERA [Suspect]
     Active Substance: DIMETHYL FUMARATE
     Indication: Multiple sclerosis
     Dosage: DIMETHYL FUMARATE 240 MG DR CAPSULE?TAKE 1 CAPSULE (240 MG) BY MOUTH 2 TIMES A DAY
     Route: 050

REACTIONS (1)
  - Treatment failure [Unknown]
